FAERS Safety Report 23211198 (Version 1)
Quarter: 2023Q4

REPORT INFORMATION
  Report Type: Spontaneous
  Country: US (occurrence: None)
  Receive Date: 20231120
  Receipt Date: 20231120
  Transmission Date: 20240109
  Serious: Yes (Other)
  Sender: FDA-Public Use
  Company Number: None

PATIENT
  Age: 70 Year
  Sex: 0

DRUGS (1)
  1. PRALUENT [Suspect]
     Active Substance: ALIROCUMAB

REACTIONS (4)
  - Influenza like illness [None]
  - Chest pain [None]
  - Post procedural complication [None]
  - Therapy interrupted [None]

NARRATIVE: CASE EVENT DATE: 20231120
